FAERS Safety Report 6083741-2 (Version None)
Quarter: 2009Q1

REPORT INFORMATION
  Report Type: 
  Country: None (occurrence: None)
  Receive Date: 20090219
  Receipt Date: 20090211
  Transmission Date: 20090719
  Serious: Yes (Hospitalization, Other)
  Sender: FDA-Public Use
  Company Number: US-AVENTIS-200911148US

PATIENT
  Sex: Male

DRUGS (10)
  1. LANTUS [Suspect]
     Route: 058
     Dates: start: 20090101
  2. NOVOLOG [Concomitant]
     Dosage: DOSE: VARIES BASED UPON SUGAR LEVEL
  3. LACTULOSE [Concomitant]
     Dates: start: 20090201
  4. DOXAZOSIN MESYLATE [Concomitant]
     Indication: INCONTINENCE
     Dates: start: 20080101
  5. PROSCAR [Concomitant]
     Dosage: DOSE: UNK
  6. HEPARIN [Concomitant]
  7. LITHIUM CARBONATE [Concomitant]
  8. DIOVANE [Concomitant]
  9. ZYPREXA [Concomitant]
     Dosage: DOSE: LOW DOSE
     Dates: start: 20090201
  10. OCTREOTIDE ACETATE [Concomitant]
     Indication: NEOPLASM

REACTIONS (6)
  - BLOOD GLUCOSE FLUCTUATION [None]
  - CONFUSIONAL STATE [None]
  - DECREASED APPETITE [None]
  - HYPOGLYCAEMIA [None]
  - SHOCK HYPOGLYCAEMIC [None]
  - WEIGHT DECREASED [None]
